FAERS Safety Report 19394729 (Version 2)
Quarter: 2021Q3

REPORT INFORMATION
  Report Type: Spontaneous
  Country: US (occurrence: US)
  Receive Date: 20210609
  Receipt Date: 20210716
  Transmission Date: 20211014
  Serious: Yes (Other)
  Sender: FDA-Public Use
  Company Number: US-ASTRAZENECA-2021A493281

PATIENT
  Age: 85 Year
  Sex: Female
  Weight: 45.4 kg

DRUGS (1)
  1. SYMBICORT [Suspect]
     Active Substance: BUDESONIDE\FORMOTEROL FUMARATE DIHYDRATE
     Indication: DYSPNOEA
     Dosage: 160/4.5UG, 2 PUFFS , TWO TIMES A DAY
     Route: 055

REACTIONS (5)
  - Fall [Unknown]
  - Dyspnoea [Recovered/Resolved]
  - Cerebrovascular accident [Recovered/Resolved]
  - Hip fracture [Unknown]
  - Device malfunction [Unknown]

NARRATIVE: CASE EVENT DATE: 2015
